FAERS Safety Report 18464488 (Version 2)
Quarter: 2020Q4

REPORT INFORMATION
  Report Type: Report from Study
  Country: US (occurrence: US)
  Receive Date: 20201104
  Receipt Date: 20201123
  Transmission Date: 20210114
  Serious: Yes (Hospitalization)
  Sender: FDA-Public Use
  Company Number: US-MYLANLABS-2020M1090618

PATIENT
  Sex: Female
  Weight: 63 kg

DRUGS (1)
  1. GLATIRAMER ACETATE INJECTION [Suspect]
     Active Substance: GLATIRAMER ACETATE
     Indication: RELAPSING-REMITTING MULTIPLE SCLEROSIS
     Dosage: 40 MILLIGRAM, 3XW
     Route: 065
     Dates: end: 2020

REACTIONS (7)
  - Neck pain [Unknown]
  - Vomiting [Unknown]
  - Product dose omission issue [Unknown]
  - Musculoskeletal stiffness [Unknown]
  - Hospitalisation [Unknown]
  - Pain [Unknown]
  - Muscle contracture [Unknown]

NARRATIVE: CASE EVENT DATE: 2020
